FAERS Safety Report 16689445 (Version 1)
Quarter: 2019Q3

REPORT INFORMATION
  Report Type: Spontaneous
  Country: US (occurrence: US)
  Receive Date: 20190809
  Receipt Date: 20190809
  Transmission Date: 20191004
  Serious: Yes (Hospitalization, Other)
  Sender: FDA-Public Use
  Company Number: US-ASTRAZENECA-2019SF12269

PATIENT
  Age: 61 Year
  Sex: Male
  Weight: 81.2 kg

DRUGS (3)
  1. CRESTOR [Suspect]
     Active Substance: ROSUVASTATIN CALCIUM
     Indication: BLOOD CHOLESTEROL INCREASED
     Dosage: GENERIC
     Route: 048
  2. OFEV [Concomitant]
     Active Substance: NINTEDANIB
     Indication: LUNG NEOPLASM MALIGNANT
     Route: 048
     Dates: start: 2017
  3. CRESTOR [Suspect]
     Active Substance: ROSUVASTATIN CALCIUM
     Indication: BLOOD CHOLESTEROL INCREASED
     Route: 048

REACTIONS (6)
  - Interstitial lung disease [Not Recovered/Not Resolved]
  - Blood pressure increased [Unknown]
  - Neuropathy peripheral [Not Recovered/Not Resolved]
  - Intervertebral disc compression [Recovered/Resolved]
  - Body height decreased [Unknown]
  - Sciatica [Recovered/Resolved]

NARRATIVE: CASE EVENT DATE: 2000
